FAERS Safety Report 23739421 (Version 1)
Quarter: 2024Q2

REPORT INFORMATION
  Report Type: Spontaneous
  Country: BE (occurrence: BE)
  Receive Date: 20240413
  Receipt Date: 20240413
  Transmission Date: 20240716
  Serious: Yes (Other)
  Sender: FDA-Public Use
  Company Number: None

PATIENT
  Age: 22 Year
  Sex: Male

DRUGS (5)
  1. TRAZODONE [Suspect]
     Active Substance: TRAZODONE HYDROCHLORIDE
     Indication: Product used for unknown indication
     Dosage: ONE WEEK DURING TREATMENT WITH EFEXOR 75 MG
     Route: 065
  2. EFFEXOR XR [Suspect]
     Active Substance: VENLAFAXINE HYDROCHLORIDE
     Indication: Product used for unknown indication
     Dosage: TREATMENT INITIATED AFTER 1 WEEK OF EFEXOR EXEL
     Route: 065
  3. METOPROLOL [Concomitant]
     Active Substance: METOPROLOL
     Indication: Product used for unknown indication
     Route: 065
     Dates: start: 20230612
  4. Pantomed [Concomitant]
     Indication: Product used for unknown indication
     Route: 065
     Dates: start: 20230612
  5. EFFEXOR XR [Suspect]
     Active Substance: VENLAFAXINE HYDROCHLORIDE
     Indication: Product used for unknown indication
     Dosage: TREATMENT INITIATED AFTER THE TREATMENT OF HELICOBACTER PYLORI I.E END OF JANUARY / BIGINNING OF ...
     Route: 065

REACTIONS (3)
  - Intentional self-injury [Not Recovered/Not Resolved]
  - Fatigue [Not Recovered/Not Resolved]
  - Suicidal ideation [Not Recovered/Not Resolved]
